FAERS Safety Report 17214665 (Version 1)
Quarter: 2020Q1

REPORT INFORMATION
  Report Type: Spontaneous
  Country: US (occurrence: US)
  Receive Date: 20191229
  Receipt Date: 20191229
  Transmission Date: 20200409
  Serious: Yes (Other)
  Sender: FDA-Public Use
  Company Number: None

PATIENT
  Age: 33 Year
  Sex: Male
  Weight: 77.4 kg

DRUGS (7)
  1. CALCIUM GLUCONATE. [Concomitant]
     Active Substance: CALCIUM GLUCONATE
     Dates: start: 20190717, end: 20190717
  2. NORMAL SALINE [Concomitant]
     Active Substance: SODIUM CHLORIDE
     Dates: start: 20190717, end: 20190717
  3. POTASSIUM CHLORIDE. [Concomitant]
     Active Substance: POTASSIUM CHLORIDE
     Dates: start: 20190717, end: 20190717
  4. CALCIUM CARBONATE. [Concomitant]
     Active Substance: CALCIUM CARBONATE
     Dates: start: 20190717, end: 20190717
  5. K-PHOS NEUTRAL [Concomitant]
     Active Substance: POTASSIUM PHOSPHATE\SODIUM PHOSPHATE
     Dates: start: 20190717, end: 20190717
  6. MAGNESIUM SULFATE. [Concomitant]
     Active Substance: MAGNESIUM SULFATE
     Dates: start: 20190717, end: 20190717
  7. CITRATE PHOSPHATE SOLUTION [Suspect]
     Active Substance: CITRATE PHOSPHATE DEXTROSE
     Indication: ANTICOAGULANT THERAPY
     Dosage: ?          OTHER FREQUENCY:CONTINUOUS;OTHER ROUTE:EXTRACORPOREAL?

REACTIONS (8)
  - Adverse drug reaction [None]
  - Feeling abnormal [None]
  - Restlessness [None]
  - Citrate toxicity [None]
  - Tetany [None]
  - Hypoaesthesia [None]
  - Trismus [None]
  - Movement disorder [None]

NARRATIVE: CASE EVENT DATE: 20190717
